FAERS Safety Report 20491608 (Version 2)
Quarter: 2022Q1

REPORT INFORMATION
  Report Type: Spontaneous
  Country: FR (occurrence: FR)
  Receive Date: 20220218
  Receipt Date: 20220304
  Transmission Date: 20220423
  Serious: Yes (Death, Other)
  Sender: FDA-Public Use
  Company Number: FR-ASTELLAS-2022US005388

PATIENT
  Age: 50 Year
  Sex: Female

DRUGS (16)
  1. BENDAMUSTINE HYDROCHLORIDE [Suspect]
     Active Substance: BENDAMUSTINE HYDROCHLORIDE
     Indication: Anaplastic large cell lymphoma T- and null-cell types
     Route: 042
  2. BENDAMUSTINE HYDROCHLORIDE [Suspect]
     Active Substance: BENDAMUSTINE HYDROCHLORIDE
     Indication: Anaplastic large cell lymphoma T- and null-cell types
     Route: 065
  3. BRENTUXIMAB [Concomitant]
     Active Substance: BRENTUXIMAB
     Indication: Anaplastic large cell lymphoma T- and null-cell types
     Route: 065
  4. BRENTUXIMAB [Concomitant]
     Active Substance: BRENTUXIMAB
     Indication: Anaplastic large cell lymphoma T- and null-cell types
     Route: 065
  5. DOXORUBICIN [Concomitant]
     Active Substance: DOXORUBICIN
     Indication: Anaplastic large cell lymphoma T- and null-cell types
     Route: 065
  6. DOXORUBICIN [Concomitant]
     Active Substance: DOXORUBICIN
     Indication: Anaplastic large cell lymphoma T- and null-cell types
     Route: 065
  7. VINCRISTINE [Concomitant]
     Active Substance: VINCRISTINE
     Indication: Anaplastic large cell lymphoma T- and null-cell types
     Route: 065
  8. VINCRISTINE [Concomitant]
     Active Substance: VINCRISTINE
     Indication: Anaplastic large cell lymphoma T- and null-cell types
     Route: 065
  9. PREDNISONE [Concomitant]
     Active Substance: PREDNISONE
     Indication: Anaplastic large cell lymphoma T- and null-cell types
     Route: 065
  10. PREDNISONE [Concomitant]
     Active Substance: PREDNISONE
     Indication: Anaplastic large cell lymphoma T- and null-cell types
     Route: 065
  11. CYCLOPHOSPHAMIDE [Concomitant]
     Active Substance: CYCLOPHOSPHAMIDE
     Indication: Anaplastic large cell lymphoma T- and null-cell types
     Route: 065
  12. CYCLOPHOSPHAMIDE [Concomitant]
     Active Substance: CYCLOPHOSPHAMIDE
     Indication: Anaplastic large cell lymphoma T- and null-cell types
     Route: 065
  13. VINDESINE [Concomitant]
     Active Substance: VINDESINE
     Indication: Anaplastic large cell lymphoma T- and null-cell types
     Route: 065
  14. VINDESINE [Concomitant]
     Active Substance: VINDESINE
     Indication: Anaplastic large cell lymphoma T- and null-cell types
     Route: 065
  15. DUPILUMAB [Concomitant]
     Active Substance: DUPILUMAB
     Indication: Dermatitis atopic
     Dosage: (2 INITIALS),
     Route: 058
  16. DUPILUMAB [Concomitant]
     Active Substance: DUPILUMAB
     Dosage: , EVERY OTHER WEEK
     Route: 058

REACTIONS (4)
  - Pneumonia cytomegaloviral [Fatal]
  - Pulmonary fibrosis [Fatal]
  - Bone marrow failure [Unknown]
  - Off label use [Unknown]
